FAERS Safety Report 7537104-0 (Version None)
Quarter: 2011Q2

REPORT INFORMATION
  Report Type: 
  Country: None (occurrence: None)
  Receive Date: 20110603
  Receipt Date: 20110518
  Transmission Date: 20111010
  Serious: Yes (Other)
  Sender: FDA-Public Use
  Company Number: 2011MA006137

PATIENT
  Age: 47 Year
  Sex: Female

DRUGS (5)
  1. CORTICOSTEROIDS [Concomitant]
  2. DICLOFENAC SODIUM [Suspect]
     Indication: RHEUMATOID ARTHRITIS
     Dosage: 150 MG
     Dates: start: 19910101
  3. NSAIDS [Concomitant]
  4. METHOTREXATE [Concomitant]
  5. CYCLOSPORINE [Concomitant]

REACTIONS (7)
  - IRON DEFICIENCY ANAEMIA [None]
  - COLITIS ULCERATIVE [None]
  - ANAEMIA MACROCYTIC [None]
  - CROHN'S DISEASE [None]
  - BLOOD IRON DECREASED [None]
  - GASTROINTESTINAL DISORDER [None]
  - WEIGHT DECREASED [None]
